FAERS Safety Report 25198411 (Version 1)
Quarter: 2025Q2

REPORT INFORMATION
  Report Type: Spontaneous
  Country: LB (occurrence: LB)
  Receive Date: 20250415
  Receipt Date: 20250415
  Transmission Date: 20250716
  Serious: Yes (Other)
  Sender: ALKEM
  Company Number: LB-ALKEM LABORATORIES LIMITED-LB-ALKEM-2025-03780

PATIENT
  Age: 38 Year
  Sex: Male

DRUGS (4)
  1. MESALAMINE [Suspect]
     Active Substance: MESALAMINE
     Indication: Colitis ulcerative
     Dosage: 4 GRAM, QD (PER DAY, SUPPOSITORIES)
     Route: 054
  2. MESALAMINE [Suspect]
     Active Substance: MESALAMINE
     Indication: Colitis ulcerative
     Route: 054
  3. MESALAMINE [Suspect]
     Active Substance: MESALAMINE
     Route: 048
  4. MESALAMINE [Suspect]
     Active Substance: MESALAMINE
     Route: 065

REACTIONS (1)
  - Pemphigoid [Unknown]
